FAERS Safety Report 9764194 (Version 3)
Quarter: 2014Q2

REPORT INFORMATION
  Report Type: Report from Study
  Country: US (occurrence: US)
  Receive Date: 20131216
  Receipt Date: 20140416
  Transmission Date: 20141212
  Serious: Yes (Death, Hospitalization)
  Sender: FDA-Public Use
  Company Number: PHEH2013US025698

PATIENT
  Sex: Female

DRUGS (2)
  1. TOBI [Suspect]
     Indication: PNEUMONIA
     Dosage: 300 MG, BID
     Route: 055
  2. TOBI [Suspect]
     Indication: BRONCHIECTASIS
     Dosage: 300 MG, BID
     Route: 055

REACTIONS (4)
  - Death [Fatal]
  - Pseudomonas infection [Unknown]
  - Pneumonia [Unknown]
  - Bronchitis [Unknown]
